FAERS Safety Report 9581788 (Version 2)
Quarter: 2013Q4

REPORT INFORMATION
  Report Type: Report from Study
  Country: BR (occurrence: BR)
  Receive Date: 20131002
  Receipt Date: 20131002
  Transmission Date: 20140711
  Serious: Yes (Other)
  Sender: FDA-Public Use
  Company Number: BR-ABBVIE-13P-020-1135019-00

PATIENT
  Age: 30 Year
  Sex: Male
  Weight: 77 kg

DRUGS (7)
  1. HUMIRA [Suspect]
     Indication: ANKYLOSING SPONDYLITIS
     Route: 058
     Dates: start: 201209, end: 201212
  2. LOSARTAN [Suspect]
     Indication: PRODUCT USED FOR UNKNOWN INDICATION
  3. METHOTREXATE [Concomitant]
     Indication: ARTHRITIS
     Route: 058
     Dates: start: 1996
  4. PRELONE [Concomitant]
     Indication: MUSCLE RIGIDITY
     Route: 048
     Dates: start: 2012
  5. HYDROXYCHLOROQUINE [Concomitant]
     Indication: IMMUNOSUPPRESSANT DRUG THERAPY
     Route: 048
     Dates: start: 1996
  6. CODEINE [Concomitant]
     Indication: PAIN
     Route: 048
     Dates: start: 201302
  7. AMLODIPINE [Concomitant]
     Indication: HYPERTENSION
     Route: 048
     Dates: start: 20130804

REACTIONS (3)
  - Pain [Recovered/Resolved]
  - Pancreatitis [Recovered/Resolved]
  - Pancreatitis [Recovered/Resolved]
